FAERS Safety Report 8047483-6 (Version None)
Quarter: 2012Q1

REPORT INFORMATION
  Report Type: 
  Country: None (occurrence: None)
  Receive Date: 20120116
  Receipt Date: 20120109
  Transmission Date: 20120608
  Serious: Yes (Hospitalization, Other)
  Sender: FDA-Public Use
  Company Number: US-BAYER-2011-038325

PATIENT
  Weight: 47.619 kg

DRUGS (8)
  1. YAZ [Suspect]
     Indication: ACNE
  2. CLARITIN [Concomitant]
     Dosage: UNK
     Dates: start: 20090217
  3. YASMIN [Suspect]
     Indication: CONTRACEPTION
     Dosage: UNK
     Dates: start: 20080201
  4. YASMIN [Suspect]
     Indication: ACNE
  5. METOCLOPRAMIDE [Concomitant]
     Dosage: UNK
     Dates: start: 20090326
  6. YASMIN [Suspect]
     Indication: PREMENSTRUAL SYNDROME
  7. YAZ [Suspect]
     Indication: CONTRACEPTION
     Dosage: UNK
     Dates: start: 20080201
  8. YAZ [Suspect]
     Indication: PREMENSTRUAL SYNDROME

REACTIONS (9)
  - FEAR [None]
  - ANXIETY [None]
  - QUALITY OF LIFE DECREASED [None]
  - PAIN [None]
  - CHOLELITHIASIS [None]
  - CHOLECYSTITIS CHRONIC [None]
  - DEEP VEIN THROMBOSIS [None]
  - ANHEDONIA [None]
  - INJURY [None]
